FAERS Safety Report 4957578-9 (Version None)
Quarter: 2006Q1

REPORT INFORMATION
  Report Type: 
  Country: None (occurrence: None)
  Receive Date: 20060324
  Receipt Date: 20060308
  Transmission Date: 20060701
  Serious: Yes (Other)
  Sender: FDA-Public Use
  Company Number: US200603001928

PATIENT
  Age: 6 Year
  Sex: Male

DRUGS (1)
  1. STRATTERA [Suspect]
     Dosage: 25 MG,
     Dates: end: 20060307

REACTIONS (3)
  - HOMICIDAL IDEATION [None]
  - PARANOIA [None]
  - SUICIDAL IDEATION [None]
